FAERS Safety Report 8909945 (Version 1)
Quarter: 2012Q4

REPORT INFORMATION
  Report Type: 
  Country: US (occurrence: US)
  Receive Date: 20121115
  Receipt Date: 20121115
  Transmission Date: 20130627
  Serious: No
  Sender: FDA-Public Use
  Company Number: US-PFIZER INC-2012282515

PATIENT
  Age: 49 Year
  Sex: Male

DRUGS (1)
  1. SUTENT [Suspect]
     Indication: MALIGNANT NEOPLASM OF KIDNEY, EXCEPT PELVIS
     Dosage: 50 mg, UNK
     Dates: start: 20120820, end: 20121008

REACTIONS (2)
  - Disease progression [Unknown]
  - Renal cancer [Unknown]
